FAERS Safety Report 17195103 (Version 1)
Quarter: 2020Q1

REPORT INFORMATION
  Report Type: Spontaneous
  Country: US (occurrence: US)
  Receive Date: 20191223
  Receipt Date: 20191223
  Transmission Date: 20200409
  Serious: Yes (Hospitalization)
  Sender: FDA-Public Use
  Company Number: None

PATIENT
  Age: 61 Year
  Sex: Female

DRUGS (9)
  1. STELARA [Suspect]
     Active Substance: USTEKINUMAB
     Indication: CROHN^S DISEASE
     Dosage: ?          OTHER FREQUENCY:EVERY 8 WEEKS;?
     Route: 058
  2. FEROSUL [Concomitant]
     Active Substance: FERROUS SULFATE
  3. LOSARTAN. [Concomitant]
     Active Substance: LOSARTAN
  4. VANCOMYCIN [Concomitant]
     Active Substance: VANCOMYCIN
  5. OPIUM. [Concomitant]
     Active Substance: OPIUM
  6. PROVENTIL [Concomitant]
     Active Substance: ALBUTEROL
  7. ESOMEPRAZOLE. [Concomitant]
     Active Substance: ESOMEPRAZOLE MAGNESIUM
  8. PREDNISONE. [Concomitant]
     Active Substance: PREDNISONE
  9. STELARA [Concomitant]
     Active Substance: USTEKINUMAB

REACTIONS (4)
  - Transfusion [None]
  - Weight increased [None]
  - Condition aggravated [None]
  - Diarrhoea [None]

NARRATIVE: CASE EVENT DATE: 20191220
